FAERS Safety Report 7525229-5 (Version None)
Quarter: 2011Q2

REPORT INFORMATION
  Report Type: 
  Country: None (occurrence: None)
  Receive Date: 20110526
  Receipt Date: 20110517
  Transmission Date: 20111010
  Serious: Yes (Hospitalization)
  Sender: FDA-Public Use
  Company Number: TRP_07747_2011

PATIENT
  Age: 55 Year
  Sex: Male

DRUGS (7)
  1. LEXOMIL [Concomitant]
  2. LORAZEPAM [Concomitant]
  3. PEGASYS [Suspect]
     Indication: HEPATITIS C
     Dosage: DF
  4. OMEPRAZOLE [Concomitant]
  5. RIBAVIRIN [Suspect]
     Indication: HEPATITIS C
     Dosage: DF
  6. IMOVANE [Concomitant]
  7. TRAMADOL HCL [Concomitant]

REACTIONS (9)
  - HYPERTHERMIA [None]
  - PANCYTOPENIA [None]
  - HEPATOMEGALY [None]
  - CHEILITIS [None]
  - DRUG RASH WITH EOSINOPHILIA AND SYSTEMIC SYMPTOMS [None]
  - EATING DISORDER [None]
  - STEVENS-JOHNSON SYNDROME [None]
  - GENERAL PHYSICAL HEALTH DETERIORATION [None]
  - SPEECH DISORDER [None]
